FAERS Safety Report 23725794 (Version 2)
Quarter: 2024Q2

REPORT INFORMATION
  Report Type: Spontaneous
  Country: JP (occurrence: JP)
  Receive Date: 20240410
  Receipt Date: 20240520
  Transmission Date: 20240716
  Serious: Yes (Other)
  Sender: FDA-Public Use
  Company Number: JP-KYOWAKIRIN-2023KK015255

PATIENT
  Age: 48 Year
  Sex: Female

DRUGS (23)
  1. PEGFILGRASTIM [Suspect]
     Active Substance: PEGFILGRASTIM
     Indication: Colony stimulating factor therapy
     Dosage: 3.6 MG, 1X/2 WEEKS
     Route: 058
     Dates: start: 20221007, end: 20221215
  2. CYCLOPHOSPHAMIDE [Concomitant]
     Active Substance: CYCLOPHOSPHAMIDE
     Indication: Breast cancer
     Dosage: 1010 MG, 1X/2 WEEKS, 4 TIMES
     Route: 042
     Dates: start: 20221004, end: 20221115
  3. ADRIACIN [Concomitant]
     Active Substance: DOXORUBICIN HYDROCHLORIDE
     Indication: Breast cancer
     Dosage: 100 MG, 1X/2 WEEKS, 4 TIMES
     Route: 042
     Dates: start: 20221004, end: 20221115
  4. PACLITAXEL [Concomitant]
     Active Substance: PACLITAXEL
     Indication: Breast cancer
     Dosage: 280 MG, SINGLE
     Route: 042
     Dates: start: 20221213, end: 20221213
  5. APREPITANT [Concomitant]
     Active Substance: APREPITANT
     Indication: Product used for unknown indication
     Dosage: 1 DF, QD, MORNING, CHEMOTHERAPY DAYS 2 AND 3
     Route: 048
     Dates: start: 20221005, end: 20221006
  6. APREPITANT [Concomitant]
     Active Substance: APREPITANT
     Dosage: 1 DF, QD
     Route: 048
     Dates: start: 20221019, end: 20221020
  7. APREPITANT [Concomitant]
     Active Substance: APREPITANT
     Dosage: 1 DF, QD
     Route: 048
     Dates: start: 20221102, end: 20221103
  8. APREPITANT [Concomitant]
     Active Substance: APREPITANT
     Dosage: 1 DF, QD
     Route: 048
     Dates: start: 20221116, end: 20221117
  9. APREPITANT [Concomitant]
     Active Substance: APREPITANT
     Dosage: 1 DF, QD, BEFORE CHEMOTHERAPY, TAKEN 60 MINUTES BEFORE ADRIACIN ADMINISTRATION
     Route: 048
     Dates: start: 20221004, end: 20221004
  10. APREPITANT [Concomitant]
     Active Substance: APREPITANT
     Dosage: 1 DF, QD
     Route: 048
     Dates: start: 20221018, end: 20221018
  11. APREPITANT [Concomitant]
     Active Substance: APREPITANT
     Dosage: 1 DF, QD
     Route: 048
     Dates: start: 20221101, end: 20221101
  12. APREPITANT [Concomitant]
     Active Substance: APREPITANT
     Dosage: 1 DF, QD
     Route: 048
     Dates: start: 20221115, end: 20221115
  13. DECADRON [Concomitant]
     Active Substance: DEXAMETHASONE
     Indication: Product used for unknown indication
     Dosage: 2 DF, QD
     Route: 048
     Dates: start: 20221005, end: 20221007
  14. DECADRON [Concomitant]
     Active Substance: DEXAMETHASONE
     Dosage: 2 DF, QD
     Route: 048
     Dates: start: 20221019, end: 20221021
  15. DECADRON [Concomitant]
     Active Substance: DEXAMETHASONE
     Dosage: 2 DF, QD
     Route: 048
     Dates: start: 20221102, end: 20221104
  16. DECADRON [Concomitant]
     Active Substance: DEXAMETHASONE
     Dosage: 2 DF, QD, MORNING, CHEMOTHERAPY DAYS 2, 3, AND 4
     Route: 048
     Dates: start: 20221116, end: 20221118
  17. CALONAL [Concomitant]
     Active Substance: ACETAMINOPHEN
     Indication: Pain
     Dosage: 1 DF, AT THE ONSET OF PAIN
     Route: 048
     Dates: start: 20221003, end: 20221016
  18. ZOLPIDEM TARTRATE [Concomitant]
     Active Substance: ZOLPIDEM TARTRATE
     Indication: Insomnia
     Dosage: 1 DF, AT THE ONSET OF INSOMNIA
     Route: 048
     Dates: start: 20221006, end: 20221018
  19. SENNOSIDE A [Concomitant]
     Active Substance: SENNOSIDE A
     Indication: Product used for unknown indication
     Dosage: 2 DF, QD, AFTER DINNER
     Route: 048
     Dates: start: 20221006, end: 20221012
  20. HEPARIN SODIUM [Concomitant]
     Active Substance: HEPARIN SODIUM
     Indication: Product used for unknown indication
     Dosage: 1 SYRINGE, REGIMEN: BREAST CANCER DOSE-DENSE PACLITAXEL THERAPY,
     Route: 042
     Dates: start: 20221213, end: 20221213
  21. DEXAMETHASONE SODIUM PHOSPHATE [Concomitant]
     Active Substance: DEXAMETHASONE PHOSPHATE\DEXAMETHASONE SODIUM PHOSPHATE
     Indication: Product used for unknown indication
     Dosage: 2 ML, QD, 1 BOTTLE, REGIMEN: BREAST CANCER DOSE-DENSE PACLITAXEL THERAPY, ADMINISTERED UP TO 30 MINU
     Route: 041
     Dates: start: 20221213, end: 20221213
  22. GASTER [Concomitant]
     Active Substance: FAMOTIDINE
     Indication: Product used for unknown indication
     Dosage: 20 MG, QD, 1 BOTTLE, REGIMEN: BREAST CANCER DOSE-DENSE PACLITAXEL THERAPY, ADMINISTERED UP TO 30 MIN
     Route: 041
     Dates: start: 20221213, end: 20221213
  23. ISOTONIC SODIUM CHLORIDE SOLUTION [Concomitant]
     Active Substance: SODIUM CHLORIDE
     Indication: Product used for unknown indication
     Dosage: 50 ML, QD, 1 BOTTLE, REGIMEN: BREAST CANCER DOSE-DENSE PACLITAXEL THERAPY, ADMINISTERED UP TO 30 MIN
     Route: 041
     Dates: start: 20221213, end: 20221213

REACTIONS (2)
  - Renal tubular disorder [Recovered/Resolved]
  - Aortitis [Recovered/Resolved]

NARRATIVE: CASE EVENT DATE: 20221215
